FAERS Safety Report 8059645 (Version 2)
Quarter: 2013Q3

REPORT INFORMATION
  Report Type: Spontaneous
  Country: CA (occurrence: CA)
  Receive Date: 20110728
  Receipt Date: 20130927
  Transmission Date: 20140515
  Serious: Yes (Other)
  Sender: FDA-Public Use
  Company Number: PHHY2011CA67188

PATIENT
  Age: 10 Year
  Sex: Female

DRUGS (3)
  1. LEUPROLIDE [Suspect]
     Indication: PRECOCIOUS PUBERTY
     Dosage: 7.5 MG EVERY 3 WEEKS
     Route: 030
  2. LEUPROLIDE [Suspect]
     Dosage: 11.25 MG, EVERY 3 MONTHS
     Route: 030
  3. LEUPROLIDE [Suspect]
     Dosage: 22.5 MG EVERY 3 MONTHS
     Route: 030

REACTIONS (3)
  - Epiphysiolysis [Unknown]
  - Arthralgia [Unknown]
  - Gait disturbance [Unknown]
